FAERS Safety Report 17520541 (Version 1)
Quarter: 2020Q1

REPORT INFORMATION
  Report Type: Spontaneous
  Country: DE (occurrence: DE)
  Receive Date: 20200309
  Receipt Date: 20200309
  Transmission Date: 20200409
  Serious: Yes (Other)
  Sender: FDA-Public Use
  Company Number: NVSC2020DE066019

PATIENT
  Age: 25 Year
  Sex: Female

DRUGS (1)
  1. DOXYCYCLIN 200 - 1 A PHARMA [Suspect]
     Active Substance: DOXYCYCLINE
     Indication: PRODUCT USED FOR UNKNOWN INDICATION
     Dosage: 1 DF (200), QD
     Route: 065

REACTIONS (3)
  - Tongue dry [Not Recovered/Not Resolved]
  - Headache [Not Recovered/Not Resolved]
  - Spinal cord disorder [Not Recovered/Not Resolved]

NARRATIVE: CASE EVENT DATE: 2020
